FAERS Safety Report 20682810 (Version 1)
Quarter: 2022Q2

REPORT INFORMATION
  Report Type: Spontaneous
  Country: US (occurrence: US)
  Receive Date: 20220407
  Receipt Date: 20220407
  Transmission Date: 20220720
  Serious: Yes (Hospitalization)
  Sender: FDA-Public Use
  Company Number: US-NOVOPROD-906082

PATIENT
  Age: 62 Year
  Sex: Female

DRUGS (2)
  1. OZEMPIC [Suspect]
     Active Substance: SEMAGLUTIDE
     Indication: Product used for unknown indication
     Dosage: UNK
     Route: 058
     Dates: start: 20220304
  2. SKYRIZI [Suspect]
     Active Substance: RISANKIZUMAB-RZAA
     Indication: Psoriasis
     Dosage: 150 MG, SINGLE
     Route: 058
     Dates: start: 20220303

REACTIONS (4)
  - Obstructive airways disorder [Recovered/Resolved]
  - Dysphagia [Unknown]
  - Respiratory disorder [Recovering/Resolving]
  - Aphonia [Recovered/Resolved]

NARRATIVE: CASE EVENT DATE: 20220307
